FAERS Safety Report 8463606 (Version 4)
Quarter: 2013Q2

REPORT INFORMATION
  Report Type: Report from Study
  Country: JP (occurrence: JP)
  Receive Date: 20120316
  Receipt Date: 20130618
  Transmission Date: 20140414
  Serious: Yes (Hospitalization)
  Sender: FDA-Public Use
  Company Number: JP-ASTRAZENECA-2012SE17021

PATIENT
  Age: 27412 Day
  Sex: Female

DRUGS (25)
  1. AZD6140 [Suspect]
     Indication: CORONARY ARTERY DISEASE
     Route: 048
     Dates: start: 20111121, end: 20120307
  2. AZD6140 [Suspect]
     Indication: CORONARY ARTERY DISEASE
     Route: 048
     Dates: start: 20120326
  3. BAYASPIRIN [Suspect]
     Route: 048
     Dates: end: 20120307
  4. BAYASPIRIN [Suspect]
     Route: 048
     Dates: start: 20120310
  5. SEIBULE [Concomitant]
     Indication: TYPE 2 DIABETES MELLITUS
     Route: 048
  6. MOHRUS [Concomitant]
     Indication: OSTEOARTHRITIS
     Route: 062
  7. MOHRUS [Concomitant]
     Indication: BACK PAIN
     Route: 062
  8. TOWARAT-CR [Concomitant]
     Indication: HYPERTENSION
     Route: 048
     Dates: end: 20130423
  9. FASTIC [Concomitant]
     Indication: TYPE 2 DIABETES MELLITUS
     Route: 048
     Dates: end: 20120905
  10. BONALON [Concomitant]
     Indication: OSTEOPOROSIS
     Route: 048
  11. TALION OD [Concomitant]
     Indication: RHINITIS ALLERGIC
     Route: 048
  12. VITADAN [Concomitant]
     Indication: BACK PAIN
     Route: 048
     Dates: end: 20120308
  13. INTAL [Concomitant]
     Indication: CONJUNCTIVITIS ALLERGIC
     Route: 047
  14. ATOLANT [Concomitant]
     Indication: TINEA INFECTION
     Route: 062
  15. LULICON [Concomitant]
     Indication: TINEA INFECTION
     Route: 062
  16. REBAMIPIDE [Concomitant]
     Indication: GASTRITIS PROPHYLAXIS
     Route: 048
  17. FERROMIA [Concomitant]
     Indication: ANAEMIA
     Route: 048
  18. SHAKUYAKU KANZOUTOU [Concomitant]
     Indication: BACK PAIN
     Route: 048
  19. MUCOSTA [Concomitant]
     Indication: GASTRITIS
     Route: 048
  20. MECOBALAMIN [Concomitant]
     Indication: CARPAL TUNNEL SYNDROME
     Route: 048
  21. OLMETEC [Concomitant]
     Indication: HYPERTENSION
     Route: 048
  22. LIPITOR [Concomitant]
     Indication: HYPERLIPIDAEMIA
     Route: 048
  23. LAMISIL [Concomitant]
     Indication: TINEA INFECTION
     Route: 048
     Dates: start: 20120214
  24. FESIN [Concomitant]
     Indication: ANAEMIA
     Route: 042
     Dates: start: 20120308, end: 20120312
  25. FAMOSTAGINE [Concomitant]
     Indication: GASTROOESOPHAGEAL REFLUX DISEASE
     Route: 048

REACTIONS (1)
  - Oesophageal ulcer haemorrhage [Recovered/Resolved]
